FAERS Safety Report 10461948 (Version 14)
Quarter: 2016Q2

REPORT INFORMATION
  Report Type: Report from Study
  Country: US (occurrence: US)
  Receive Date: 20140918
  Receipt Date: 20160527
  Transmission Date: 20160815
  Serious: Yes (Other)
  Sender: FDA-Public Use
  Company Number: US-SANOFI-AVENTIS-2013SA092578

PATIENT
  Age: 72 Year
  Sex: Female
  Weight: 87 kg

DRUGS (9)
  1. VITAMIN D3 [Concomitant]
     Active Substance: CHOLECALCIFEROL
     Indication: VITAMIN D DECREASED
     Dosage: TAKEN FROM- 5 YEARS
     Route: 065
  2. TECFIDERA [Concomitant]
     Active Substance: DIMETHYL FUMARATE
     Dates: start: 20131014, end: 20141024
  3. AUBAGIO [Suspect]
     Active Substance: TERIFLUNOMIDE
     Indication: MULTIPLE SCLEROSIS
     Route: 048
     Dates: start: 20140105
  4. VITAMIN D3 [Concomitant]
     Active Substance: CHOLECALCIFEROL
     Indication: VITAMIN D DECREASED
     Route: 065
  5. AUBAGIO [Suspect]
     Active Substance: TERIFLUNOMIDE
     Indication: MULTIPLE SCLEROSIS
     Route: 048
     Dates: start: 20130910
  6. AUBAGIO [Suspect]
     Active Substance: TERIFLUNOMIDE
     Indication: MULTIPLE SCLEROSIS
     Route: 048
     Dates: start: 20130910
  7. AUBAGIO [Suspect]
     Active Substance: TERIFLUNOMIDE
     Indication: MULTIPLE SCLEROSIS
     Route: 048
  8. AUBAGIO [Suspect]
     Active Substance: TERIFLUNOMIDE
     Indication: MULTIPLE SCLEROSIS
     Route: 048
     Dates: start: 20151231
  9. AVONEX [Concomitant]
     Active Substance: INTERFERON BETA-1A
     Dates: start: 20140901, end: 20141001

REACTIONS (58)
  - Loss of consciousness [Recovering/Resolving]
  - Hemiparesis [Unknown]
  - Laceration [Unknown]
  - Increased viscosity of upper respiratory secretion [Recovering/Resolving]
  - Condition aggravated [Unknown]
  - Abdominal discomfort [Unknown]
  - Pruritus [Recovering/Resolving]
  - Limb injury [Unknown]
  - Urine odour abnormal [Unknown]
  - Fall [Unknown]
  - Nuclear magnetic resonance imaging abnormal [Unknown]
  - Unevaluable event [Unknown]
  - Cough [Recovering/Resolving]
  - Diarrhoea [Unknown]
  - Inappropriate schedule of drug administration [Unknown]
  - Macular degeneration [Unknown]
  - Flushing [Not Recovered/Not Resolved]
  - Asthenia [Unknown]
  - Cognitive disorder [Unknown]
  - Increased tendency to bruise [Unknown]
  - Hot flush [Not Recovered/Not Resolved]
  - Dizziness [Recovered/Resolved]
  - Vomiting [Recovering/Resolving]
  - Mood swings [Unknown]
  - Depression [Unknown]
  - Hypoaesthesia [Unknown]
  - Pain in extremity [Unknown]
  - Dry skin [Not Recovered/Not Resolved]
  - Sunburn [Not Recovered/Not Resolved]
  - Feeling abnormal [Unknown]
  - Paraesthesia [Recovered/Resolved]
  - Muscle spasms [Recovered/Resolved]
  - Cyst [Not Recovered/Not Resolved]
  - Dehydration [Recovering/Resolving]
  - Dysgeusia [Unknown]
  - Thirst [Unknown]
  - Contusion [Unknown]
  - Memory impairment [Not Recovered/Not Resolved]
  - Gait disturbance [Recovering/Resolving]
  - Rhinitis allergic [Recovering/Resolving]
  - Balance disorder [Unknown]
  - Impaired healing [Unknown]
  - Stress [Unknown]
  - Altered visual depth perception [Unknown]
  - Anger [Unknown]
  - Rash [Recovered/Resolved]
  - Vertigo [Recovering/Resolving]
  - Sneezing [Recovering/Resolving]
  - Headache [Not Recovered/Not Resolved]
  - Nausea [Unknown]
  - Night blindness [Unknown]
  - Feeling jittery [Unknown]
  - Skin odour abnormal [Unknown]
  - Tremor [Unknown]
  - Weight decreased [Unknown]
  - Confusional state [Not Recovered/Not Resolved]
  - Paranasal sinus hypersecretion [Recovering/Resolving]
  - Visual impairment [Unknown]

NARRATIVE: CASE EVENT DATE: 201309
